FAERS Safety Report 7410721-4 (Version None)
Quarter: 2011Q2

REPORT INFORMATION
  Report Type: 
  Country: None (occurrence: None)
  Receive Date: 20110405
  Receipt Date: 20110321
  Transmission Date: 20111010
  Serious: Yes (Other)
  Sender: FDA-Public Use
  Company Number: 2011BN000020

PATIENT

DRUGS (9)
  1. CISPLATIN [Concomitant]
  2. ETOPOSIDE [Concomitant]
  3. VINCRISTINE [Concomitant]
  4. CYCLOPHOSPHAMIDE [Concomitant]
  5. CLONAZEPAM [Concomitant]
  6. CARBOPLATIN [Concomitant]
  7. MELPHALAN HYDROCHLORIDE [Suspect]
     Indication: BONE MARROW CONDITIONING REGIMEN
     Dosage: 140 MG/M2;1X;IV
     Route: 042
  8. NEUPOGEN [Concomitant]
  9. BUSULFAN [Suspect]
     Indication: BONE MARROW CONDITIONING REGIMEN
     Dosage: 16 MG/KG;OVER 4 DAYS;PO
     Route: 048

REACTIONS (4)
  - HEPATOTOXICITY [None]
  - TOXICITY TO VARIOUS AGENTS [None]
  - MUCOSAL INFLAMMATION [None]
  - ENGRAFTMENT SYNDROME [None]
